FAERS Safety Report 12569347 (Version 1)
Quarter: 2016Q3

REPORT INFORMATION
  Report Type: Spontaneous
  Country: US (occurrence: US)
  Receive Date: 20160719
  Receipt Date: 20160719
  Transmission Date: 20161109
  Serious: Yes (Other)
  Sender: FDA-Public Use
  Company Number: US-AMGEN-USASP2016091365

PATIENT
  Age: 85 Year
  Sex: Female

DRUGS (1)
  1. ENBREL [Suspect]
     Active Substance: ETANERCEPT
     Indication: RHEUMATOID ARTHRITIS
     Dosage: 25 MG, ONCE A WEEK
     Route: 058
     Dates: start: 20060919

REACTIONS (2)
  - Fall [Recovered/Resolved]
  - Femur fracture [Recovered/Resolved]

NARRATIVE: CASE EVENT DATE: 20160607
